FAERS Safety Report 21600527 (Version 2)
Quarter: 2023Q1

REPORT INFORMATION
  Report Type: Spontaneous
  Country: US (occurrence: US)
  Receive Date: 20221116
  Receipt Date: 20230214
  Transmission Date: 20230417
  Serious: Yes (Other)
  Sender: FDA-Public Use
  Company Number: US-BRISTOL-MYERS SQUIBB COMPANY-2022-137905

PATIENT
  Age: 68 Year
  Sex: Male

DRUGS (1)
  1. OPDIVO [Suspect]
     Active Substance: NIVOLUMAB
     Indication: Hepatic cancer
     Dosage: DOSE : UNAVAILABLE;     FREQ : ONCE A MONTH
     Route: 042

REACTIONS (4)
  - Urinary retention [Unknown]
  - Diarrhoea [Unknown]
  - Weight decreased [Unknown]
  - Prostatic disorder [Unknown]
